FAERS Safety Report 7608236-3 (Version None)
Quarter: 2011Q3

REPORT INFORMATION
  Report Type: 
  Country: None (occurrence: None)
  Receive Date: 20110714
  Receipt Date: 20110629
  Transmission Date: 20111222
  Serious: No
  Sender: FDA-Public Use
  Company Number: US-B.I. PHARMACEUTICALS,INC./RIDGEFIELD-2011-BP-16673BP

PATIENT
  Age: 82 Year
  Sex: Male

DRUGS (11)
  1. PRADAXA [Suspect]
     Indication: ATRIAL FIBRILLATION
     Dosage: 150 MG
     Route: 048
     Dates: start: 20101204
  2. VITAMIN D [Concomitant]
     Indication: VITAMIN SUPPLEMENTATION
     Dosage: 2000 MG
     Route: 048
     Dates: start: 20100901
  3. ASPIRIN [Concomitant]
     Indication: PROPHYLAXIS
     Dosage: 81 MG
     Route: 048
  4. ARICEPT [Concomitant]
     Indication: DEMENTIA ALZHEIMER'S TYPE
     Dosage: 10 MG
     Route: 048
     Dates: start: 20030101
  5. CEREFOLIN [Concomitant]
     Indication: VITAMIN SUPPLEMENTATION
     Route: 048
     Dates: start: 20100901
  6. NORVASC [Suspect]
     Indication: HYPERTENSION
     Dosage: 5 MG
     Route: 048
     Dates: end: 20110628
  7. QUINAPRIL HCL [Concomitant]
     Indication: HYPERTENSION
     Dosage: 20 MG
     Route: 048
  8. AMIODARONE HCL [Concomitant]
     Indication: ATRIAL FIBRILLATION
     Dosage: 300 MG
     Route: 048
     Dates: start: 20030101
  9. CRESTOR [Concomitant]
     Indication: BLOOD CHOLESTEROL INCREASED
     Dosage: 10 MG
     Route: 048
  10. COREG [Concomitant]
     Route: 048
  11. COREG [Concomitant]
     Indication: HYPERTENSION
     Dosage: 25 MG
     Route: 048

REACTIONS (3)
  - FATIGUE [None]
  - NECK PAIN [None]
  - BLOOD PRESSURE DECREASED [None]
